FAERS Safety Report 5314757-9 (Version None)
Quarter: 2007Q2

REPORT INFORMATION
  Report Type: 
  Country: None (occurrence: None)
  Receive Date: 20070427
  Receipt Date: 20070412
  Transmission Date: 20071010
  Serious: Yes (Other)
  Sender: FDA-Public Use
  Company Number: 2007RR-06864

PATIENT
  Age: 20 Year
  Sex: Female

DRUGS (2)
  1. FLUOXETINE [Suspect]
     Dosage: 20 MG
     Dates: start: 20030601
  2. FLUOXETINE [Suspect]
     Dosage: 30 MG
     Dates: start: 20030601

REACTIONS (6)
  - CHILD NEGLECT [None]
  - DRUG EFFECT DECREASED [None]
  - IMPULSIVE BEHAVIOUR [None]
  - PHYSICAL ASSAULT [None]
  - SUICIDAL IDEATION [None]
  - THEFT [None]
